FAERS Safety Report 6963929-6 (Version None)
Quarter: 2010Q3

REPORT INFORMATION
  Report Type: 
  Country: None (occurrence: None)
  Receive Date: 20100831
  Receipt Date: 20100824
  Transmission Date: 20110219
  Serious: Yes (Death)
  Sender: FDA-Public Use
  Company Number: 2010US003131

PATIENT
  Age: 54 Year
  Sex: Female

DRUGS (1)
  1. AMBISOME [Suspect]
     Indication: BRONCHOPULMONARY ASPERGILLOSIS
     Dosage: 75 MG, UID/QD, IV NOS
     Route: 042
     Dates: start: 20091114, end: 20091123

REACTIONS (2)
  - HYPOKALAEMIA [None]
  - PNEUMONITIS [None]
